FAERS Safety Report 17430207 (Version 2)
Quarter: 2020Q1

REPORT INFORMATION
  Report Type: Spontaneous
  Country: JP (occurrence: JP)
  Receive Date: 20200214
  Receipt Date: 20200221
  Transmission Date: 20200409
  Serious: Yes (Hospitalization, Other)
  Sender: FDA-Public Use
  Company Number: JP-009507513-2002JPN005267

PATIENT
  Age: 88 Year
  Sex: Male

DRUGS (2)
  1. VOGLIBOSE [Concomitant]
     Active Substance: VOGLIBOSE
  2. GLACTIV [Suspect]
     Active Substance: SITAGLIPTIN
     Indication: LATENT AUTOIMMUNE DIABETES IN ADULTS
     Dosage: 50 MILLIGRAM
     Route: 048

REACTIONS (2)
  - Off label use [Unknown]
  - Atypical mycobacterial infection [Unknown]
